FAERS Safety Report 4384862-2 (Version None)
Quarter: 2004Q2

REPORT INFORMATION
  Report Type: 
  Country: None (occurrence: None)
  Receive Date: 20040621
  Receipt Date: 20040604
  Transmission Date: 20050107
  Serious: Yes (Life-Threatening, Other)
  Sender: FDA-Public Use
  Company Number: 2004-BP-03296NB

PATIENT
  Age: 77 Year
  Sex: Female

DRUGS (3)
  1. MICARDIS [Suspect]
     Indication: HYPERTENSION
     Dosage: 40 MG (NR) PO
     Route: 048
     Dates: start: 20040406, end: 20040406
  2. RIZE (CLOTIAZEPAM) [Concomitant]
  3. POLYFUL (TA) [Concomitant]

REACTIONS (2)
  - GLUCOSE TOLERANCE IMPAIRED [None]
  - HYPOGLYCAEMIA [None]
